FAERS Safety Report 5623338-9 (Version None)
Quarter: 2008Q1

REPORT INFORMATION
  Report Type: 
  Country: None (occurrence: None)
  Receive Date: 20080207
  Receipt Date: 20080128
  Transmission Date: 20080703
  Serious: Yes (Hospitalization)
  Sender: FDA-Public Use
  Company Number: US-WYE-H02337108

PATIENT
  Age: 44 Year
  Sex: Female

DRUGS (2)
  1. CENTRUM [Suspect]
     Indication: NUTRITIONAL SUPPORT
     Dosage: 1 TABLET 1X PER 1 DAY ORAL
     Route: 048
     Dates: end: 20080114
  2. SYNTHROID [Concomitant]

REACTIONS (2)
  - ABDOMINAL PAIN UPPER [None]
  - GASTROINTESTINAL OBSTRUCTION [None]
